FAERS Safety Report 16834302 (Version 3)
Quarter: 2020Q1

REPORT INFORMATION
  Report Type: Spontaneous
  Country: US (occurrence: US)
  Receive Date: 20190920
  Receipt Date: 20200110
  Transmission Date: 20200409
  Serious: Yes (Other)
  Sender: FDA-Public Use
  Company Number: US-PFIZER INC-2019402155

PATIENT
  Age: 72 Year
  Sex: Male
  Weight: 78.46 kg

DRUGS (2)
  1. LYRICA [Suspect]
     Active Substance: PREGABALIN
     Dosage: 100 MG, THREE TIMES A DAY
     Route: 048
     Dates: start: 20200107
  2. LYRICA [Suspect]
     Active Substance: PREGABALIN
     Indication: POLYNEUROPATHY
     Dosage: 100 MG, THREE TIMES A DAY
     Route: 048
     Dates: start: 20190916

REACTIONS (2)
  - Therapeutic product effect incomplete [Unknown]
  - Chronic obstructive pulmonary disease [Unknown]
